FAERS Safety Report 6249813-4 (Version None)
Quarter: 2009Q2

REPORT INFORMATION
  Report Type: 
  Country: None (occurrence: None)
  Receive Date: 20090629
  Receipt Date: 20090618
  Transmission Date: 20091009
  Serious: Yes (Other)
  Sender: FDA-Public Use
  Company Number: PHHY2009BR24552

PATIENT
  Sex: Female

DRUGS (3)
  1. DIOVAN HCT [Suspect]
  2. GLIFAGE XR [Suspect]
  3. METFORMIN [Concomitant]

REACTIONS (2)
  - EYE SWELLING [None]
  - PHARYNGEAL OEDEMA [None]
